FAERS Safety Report 10346236 (Version 1)
Quarter: 2014Q3

REPORT INFORMATION
  Report Type: Spontaneous
  Country: BR (occurrence: BR)
  Receive Date: 20140728
  Receipt Date: 20140728
  Transmission Date: 20150326
  Serious: Yes (Hospitalization, Other)
  Sender: FDA-Public Use
  Company Number: BR-009507513-1407BRA011997

PATIENT
  Age: 92 Year
  Sex: Female

DRUGS (8)
  1. MYDETON TABLETS [Concomitant]
     Indication: PAIN
  2. GABAPENTIN. [Concomitant]
     Active Substance: GABAPENTIN
     Indication: PAIN
  3. AMITRIPTYLINE HYDROCHLORIDE. [Suspect]
     Active Substance: AMITRIPTYLINE HYDROCHLORIDE
     Indication: PAIN
  4. LYRICA [Concomitant]
     Active Substance: PREGABALIN
     Indication: PAIN
  5. MYDETON TABLETS [Concomitant]
     Indication: DEPRESSION
     Dosage: UNK, UNKNOWN
     Dates: end: 201211
  6. GABAPENTIN. [Concomitant]
     Active Substance: GABAPENTIN
     Indication: DEPRESSION
     Dosage: UNK, UNKNOWN
  7. AMITRIPTYLINE HYDROCHLORIDE. [Suspect]
     Active Substance: AMITRIPTYLINE HYDROCHLORIDE
     Indication: DEPRESSION
     Dosage: UNK, UNKNOWN
     Route: 048
  8. LYRICA [Concomitant]
     Active Substance: PREGABALIN
     Indication: DEPRESSION
     Dosage: UNK, UNKNOWN
     Dates: start: 2011, end: 201211

REACTIONS (10)
  - Pleural effusion [Unknown]
  - Respiratory distress [Unknown]
  - Cardiac failure [Unknown]
  - Hypertensive crisis [Unknown]
  - Pleural effusion [Unknown]
  - Hypertensive crisis [Unknown]
  - Off label use [Unknown]
  - Dyspnoea [Unknown]
  - Respiratory distress [Unknown]
  - Somnolence [Unknown]

NARRATIVE: CASE EVENT DATE: 201211
